FAERS Safety Report 12099612 (Version 1)
Quarter: 2016Q1

REPORT INFORMATION
  Report Type: Spontaneous
  Country: US (occurrence: None)
  Receive Date: 20160219
  Receipt Date: 20160219
  Transmission Date: 20160526
  Serious: No
  Sender: FDA-Public Use
  Company Number: None

PATIENT

DRUGS (2)
  1. VERAPAMIL HCL [Suspect]
     Active Substance: VERAPAMIL HYDROCHLORIDE
     Dosage: AMPULE 2ML
  2. FENTANYL CITRATE 100 MCG/2ML HOSPIRA, INC. [Suspect]
     Active Substance: FENTANYL CITRATE
     Dosage: AMPULE 2 ML

REACTIONS (2)
  - Product label confusion [None]
  - Intercepted drug dispensing error [None]
